FAERS Safety Report 16404885 (Version 3)
Quarter: 2019Q3

REPORT INFORMATION
  Report Type: Spontaneous
  Country: US (occurrence: US)
  Receive Date: 20190607
  Receipt Date: 20190719
  Transmission Date: 20191004
  Serious: Yes (Other)
  Sender: FDA-Public Use
  Company Number: US-ASTRAZENECA-2018SF64687

PATIENT
  Age: 784 Month
  Sex: Female
  Weight: 90.7 kg

DRUGS (42)
  1. NEXIUM [Suspect]
     Active Substance: ESOMEPRAZOLE MAGNESIUM
     Indication: GASTROOESOPHAGEAL REFLUX DISEASE
     Route: 048
     Dates: start: 201303, end: 201405
  2. NEXIUM 24HR [Suspect]
     Active Substance: ESOMEPRAZOLE MAGNESIUM
     Indication: GASTROOESOPHAGEAL REFLUX DISEASE
     Route: 048
  3. NEXIUM 24HR [Suspect]
     Active Substance: ESOMEPRAZOLE MAGNESIUM
     Indication: GASTROOESOPHAGEAL REFLUX DISEASE
     Route: 048
     Dates: start: 201404, end: 201501
  4. PROTONIX [Suspect]
     Active Substance: PANTOPRAZOLE SODIUM
     Indication: GASTROOESOPHAGEAL REFLUX DISEASE
     Route: 065
  5. TRIAMCINOLONE [Concomitant]
     Active Substance: TRIAMCINOLONE
  6. NEXIUM [Suspect]
     Active Substance: ESOMEPRAZOLE MAGNESIUM
     Indication: GASTROOESOPHAGEAL REFLUX DISEASE
     Route: 048
     Dates: start: 20130308, end: 20140509
  7. PREVACID 24 HR [Suspect]
     Active Substance: LANSOPRAZOLE
     Route: 065
  8. LANTUS [Concomitant]
     Active Substance: INSULIN GLARGINE
  9. ONDANSETRON [Concomitant]
     Active Substance: ONDANSETRON
  10. VENTOLIN [Concomitant]
     Active Substance: ALBUTEROL SULFATE
  11. WALGREENS [Concomitant]
  12. LASIX [Concomitant]
     Active Substance: FUROSEMIDE
  13. PRILOSEC OTC [Suspect]
     Active Substance: OMEPRAZOLE MAGNESIUM
     Route: 048
  14. INSULIN [Concomitant]
     Active Substance: INSULIN NOS
  15. LOSARTAN. [Concomitant]
     Active Substance: LOSARTAN
  16. NOVOLOG [Concomitant]
     Active Substance: INSULIN ASPART
  17. METRONIDAZOLE. [Concomitant]
     Active Substance: METRONIDAZOLE
  18. BYSTOLIC [Concomitant]
     Active Substance: NEBIVOLOL HYDROCHLORIDE
     Indication: BLOOD CHOLESTEROL INCREASED
     Dates: start: 20141110, end: 20150216
  19. PRILOSEC [Suspect]
     Active Substance: OMEPRAZOLE MAGNESIUM
     Route: 048
  20. ALLOPURINOL. [Concomitant]
     Active Substance: ALLOPURINOL
  21. LIPITOR [Concomitant]
     Active Substance: ATORVASTATIN CALCIUM
  22. SERTRALINE [Concomitant]
     Active Substance: SERTRALINE HYDROCHLORIDE
  23. NYSTOP [Concomitant]
     Active Substance: NYSTATIN
  24. ATORVASTATIN [Concomitant]
     Active Substance: ATORVASTATIN
     Indication: BLOOD CHOLESTEROL INCREASED
     Dates: start: 20161122, end: 20170203
  25. TYLENOL [Concomitant]
     Active Substance: ACETAMINOPHEN
     Indication: PAIN
  26. NEXIUM [Suspect]
     Active Substance: ESOMEPRAZOLE MAGNESIUM
     Indication: GASTROOESOPHAGEAL REFLUX DISEASE
     Route: 048
  27. BENADRYL [Concomitant]
     Active Substance: DIPHENHYDRAMINE HYDROCHLORIDE
     Indication: PRURITUS
  28. VITAMINS [Concomitant]
     Active Substance: VITAMINS
     Indication: IMMUNE SYSTEM DISORDER
  29. DEXILANT [Suspect]
     Active Substance: DEXLANSOPRAZOLE
     Route: 065
  30. CALCITRIOL. [Concomitant]
     Active Substance: CALCITRIOL
  31. ERGOCALCIFEROL. [Concomitant]
     Active Substance: ERGOCALCIFEROL
  32. SODIUM BICARBONATE. [Concomitant]
     Active Substance: SODIUM BICARBONATE
  33. HYDRALAZINE [Concomitant]
     Active Substance: HYDRALAZINE HYDROCHLORIDE
  34. FUROSEMIDE. [Concomitant]
     Active Substance: FUROSEMIDE
     Indication: FLUID RETENTION
     Dates: start: 20150812, end: 20170203
  35. PREVACID [Suspect]
     Active Substance: LANSOPRAZOLE
     Route: 065
  36. PROTONIX [Suspect]
     Active Substance: PANTOPRAZOLE SODIUM
     Indication: GASTROOESOPHAGEAL REFLUX DISEASE
     Route: 065
     Dates: start: 201501, end: 201801
  37. HUMALOG [Concomitant]
     Active Substance: INSULIN LISPRO
  38. AMLODIPINE [Concomitant]
     Active Substance: AMLODIPINE BESYLATE
  39. MUPIROCIN. [Concomitant]
     Active Substance: MUPIROCIN
  40. VANCOMYCIN [Concomitant]
     Active Substance: VANCOMYCIN
  41. CIPROFLOXACIN. [Concomitant]
     Active Substance: CIPROFLOXACIN
  42. TRIAMTERENE. [Concomitant]
     Active Substance: TRIAMTERENE
     Indication: HYPERTENSION
     Dates: start: 20131115, end: 20140510

REACTIONS (8)
  - Nephrogenic anaemia [Unknown]
  - Acute kidney injury [Not Recovered/Not Resolved]
  - Dyspepsia [Unknown]
  - Chronic kidney disease [Not Recovered/Not Resolved]
  - End stage renal disease [Unknown]
  - Renal failure [Unknown]
  - Tubulointerstitial nephritis [Unknown]
  - Renal disorder [Unknown]

NARRATIVE: CASE EVENT DATE: 201509
